FAERS Safety Report 7668613-1 (Version None)
Quarter: 2011Q3

REPORT INFORMATION
  Report Type: 
  Country: None (occurrence: None)
  Receive Date: 20110808
  Receipt Date: 20110808
  Transmission Date: 20111222
  Serious: No
  Sender: FDA-Public Use
  Company Number: None

PATIENT
  Age: 41 Year
  Sex: Female
  Weight: 755.23 kg

DRUGS (1)
  1. CYMBALTA [Suspect]
     Dosage: ONCE A DAY

REACTIONS (7)
  - BOWEL MOVEMENT IRREGULARITY [None]
  - DYSPEPSIA [None]
  - FOOD CRAVING [None]
  - WEIGHT INCREASED [None]
  - PANIC ATTACK [None]
  - HYPERSOMNIA [None]
  - DRUG DEPENDENCE [None]
